FAERS Safety Report 6491469-X (Version None)
Quarter: 2009Q4

REPORT INFORMATION
  Report Type: 
  Country: None (occurrence: None)
  Receive Date: 20091211
  Receipt Date: 20091207
  Transmission Date: 20100525
  Serious: Yes (Life-Threatening, Congenital Anomaly, Other)
  Sender: FDA-Public Use
  Company Number: GB-B.I. PHARMACEUTICALS,INC./RIDGEFIELD-2006-BP-09178BP

PATIENT
  Sex: Male
  Weight: 2.4 kg

DRUGS (2)
  1. VIRAMUNE [Suspect]
     Indication: HIV INFECTION
     Dosage: 400 MG
     Route: 064
     Dates: start: 20060717
  2. COMBIVIR [Suspect]
     Indication: HIV INFECTION
     Route: 064
     Dates: start: 20060717

REACTIONS (10)
  - ASCITES [None]
  - CARDIOMYOPATHY [None]
  - CYTOMEGALOVIRUS INFECTION [None]
  - DEVELOPMENTAL DELAY [None]
  - FOETAL-MATERNAL HAEMORRHAGE [None]
  - HAEMOGLOBIN DECREASED [None]
  - HYDROPS FOETALIS [None]
  - PERICARDIAL EFFUSION [None]
  - SMALL FOR DATES BABY [None]
  - ULTRASOUND ANTENATAL SCREEN ABNORMAL [None]
